FAERS Safety Report 6763781-8 (Version None)
Quarter: 2010Q2

REPORT INFORMATION
  Report Type: 
  Country: None (occurrence: None)
  Receive Date: 20100610
  Receipt Date: 20100503
  Transmission Date: 20101027
  Serious: Yes (Other)
  Sender: FDA-Public Use
  Company Number: NL-ASTRAZENECA-2010SE22466

PATIENT
  Sex: Male

DRUGS (8)
  1. SEROQUEL [Suspect]
     Indication: DEPRESSION
     Route: 048
  2. SEROQUEL [Suspect]
     Indication: BURNOUT SYNDROME
     Route: 048
  3. SEROQUEL [Suspect]
     Route: 048
  4. SEROQUEL [Suspect]
     Indication: AUTISM
     Route: 048
  5. OXZACEPAM [Suspect]
  6. PROPRANOLOL [Suspect]
  7. EFFEXOR [Concomitant]
  8. ZOLOFT [Concomitant]

REACTIONS (10)
  - AGGRESSION [None]
  - HEADACHE [None]
  - HOMICIDAL IDEATION [None]
  - INSOMNIA [None]
  - IRRITABILITY [None]
  - LIBIDO DECREASED [None]
  - MENTAL IMPAIRMENT [None]
  - NAUSEA [None]
  - SUICIDAL IDEATION [None]
  - WEIGHT INCREASED [None]
